FAERS Safety Report 17157535 (Version 1)
Quarter: 2019Q4

REPORT INFORMATION
  Report Type: Spontaneous
  Country: US (occurrence: US)
  Receive Date: 20191213
  Receipt Date: 20191213
  Transmission Date: 20200122
  Serious: Yes (Disabling)
  Sender: FDA-Public Use
  Company Number: None

PATIENT
  Age: 45 Year
  Sex: Male
  Weight: 128.25 kg

DRUGS (2)
  1. GENERIC TOBRADEX EYE DROPS. [Suspect]
     Active Substance: DEXAMETHASONE\TOBRAMYCIN
     Indication: OCULAR HYPERAEMIA
     Route: 047
     Dates: start: 20191210, end: 20191211
  2. DEXILANT [Concomitant]
     Active Substance: DEXLANSOPRAZOLE

REACTIONS (2)
  - Vision blurred [None]
  - Abnormal sensation in eye [None]

NARRATIVE: CASE EVENT DATE: 20191210
